FAERS Safety Report 9657617 (Version 2)
Quarter: 2013Q4

REPORT INFORMATION
  Report Type: Spontaneous
  Country: US (occurrence: US)
  Receive Date: 20131030
  Receipt Date: 20131030
  Transmission Date: 20140711
  Serious: Yes (Death)
  Sender: FDA-Public Use
  Company Number: US-NAPPMUNDI-USA-2011-0068803

PATIENT
  Age: 21 Year
  Sex: Male

DRUGS (5)
  1. OXYCONTIN TABLETS [Suspect]
     Indication: SUBSTANCE ABUSE
  2. ALCOHOL [Suspect]
     Indication: SUBSTANCE ABUSE
  3. MARIJUANA [Suspect]
     Indication: SUBSTANCE ABUSE
  4. XANAX [Suspect]
     Indication: SUBSTANCE ABUSE
  5. FENTANYL [Suspect]
     Indication: SUBSTANCE ABUSE

REACTIONS (1)
  - Substance abuse [Fatal]
